FAERS Safety Report 15566884 (Version 1)
Quarter: 2018Q4

REPORT INFORMATION
  Report Type: Report from Study
  Country: PE (occurrence: PE)
  Receive Date: 20181030
  Receipt Date: 20181030
  Transmission Date: 20190205
  Serious: Yes (Hospitalization)
  Sender: FDA-Public Use
  Company Number: PE-EMD SERONO-E2B_90062958

PATIENT
  Sex: Female

DRUGS (2)
  1. EUTIROX [Concomitant]
     Active Substance: LEVOTHYROXINE SODIUM
     Indication: HYPOTHYROIDISM
     Dosage: FASTING DAILY
  2. SAIZEN [Suspect]
     Active Substance: SOMATROPIN
     Indication: GROWTH HORMONE DEFICIENCY
     Dosage: SAIZEN LIQUIDO 12MG (36UI)
     Route: 058
     Dates: start: 20180807, end: 201809

REACTIONS (2)
  - Craniopharyngioma [Unknown]
  - Neoplasm progression [Unknown]

NARRATIVE: CASE EVENT DATE: 2018
